APPROVED DRUG PRODUCT: PREVACID NAPRAPAC 250 (COPACKAGED)
Active Ingredient: LANSOPRAZOLE; NAPROXEN
Strength: 15MG,N/A;N/A,250MG **Federal Register determination that product was not discontinued or withdrawn for safety or effectiveness reasons**
Dosage Form/Route: CAPSULE, DELAYED REL PELLETS, TABLET;ORAL
Application: N021507 | Product #002
Applicant: TAKEDA PHARMACEUTICALS NORTH AMERICA INC
Approved: Nov 14, 2003 | RLD: Yes | RS: No | Type: DISCN